FAERS Safety Report 6818563-5 (Version None)
Quarter: 2010Q3

REPORT INFORMATION
  Report Type: 
  Country: None (occurrence: None)
  Receive Date: 20100706
  Receipt Date: 20100628
  Transmission Date: 20110219
  Serious: Yes (Other)
  Sender: FDA-Public Use
  Company Number: US-ABBOTT-10P-163-0653899-00

PATIENT
  Age: 55 Year
  Sex: Male

DRUGS (6)
  1. NIASPAN [Suspect]
     Indication: DYSLIPIDAEMIA
     Dates: start: 20100601, end: 20100601
  2. NIASPAN [Suspect]
     Dates: start: 20100101, end: 20100601
  3. CARVEDILOL [Suspect]
     Indication: CARDIAC DISORDER
  4. LIPITOR [Concomitant]
     Indication: PRODUCT USED FOR UNKNOWN INDICATION
  5. ENALAPRIL MALEATE [Concomitant]
     Indication: CARDIAC DISORDER
     Dosage: FORM STRENGTH 20MG
  6. ASPIRIN [Concomitant]
     Indication: CARDIAC DISORDER

REACTIONS (3)
  - BRADYCARDIA [None]
  - ERYTHEMA [None]
  - SYNCOPE [None]
